FAERS Safety Report 18002962 (Version 1)
Quarter: 2020Q3

REPORT INFORMATION
  Report Type: Spontaneous
  Country: US (occurrence: US)
  Receive Date: 20200710
  Receipt Date: 20200710
  Transmission Date: 20201103
  Serious: No
  Sender: FDA-Public Use
  Company Number: US-009507513-2006USA005359

PATIENT
  Age: 72 Year
  Sex: Female

DRUGS (1)
  1. DIPROLENE AF [Suspect]
     Active Substance: BETAMETHASONE DIPROPIONATE
     Indication: GRANULOMA ANNULARE
     Dosage: 3 TO 4 TIMES A DAY
     Route: 061

REACTIONS (1)
  - Inappropriate schedule of product administration [Unknown]
